FAERS Safety Report 6817607-4 (Version None)
Quarter: 2010Q3

REPORT INFORMATION
  Report Type: 
  Country: None (occurrence: None)
  Receive Date: 20100706
  Receipt Date: 20100625
  Transmission Date: 20110219
  Serious: Yes (Hospitalization)
  Sender: FDA-Public Use
  Company Number: FR-SANOFI-AVENTIS-2010SA036646

PATIENT
  Age: 73 Year
  Sex: Female

DRUGS (19)
  1. LOVENOX [Suspect]
     Route: 058
     Dates: start: 20100419, end: 20100420
  2. PROPOFOL [Suspect]
     Route: 042
     Dates: start: 20100420, end: 20100420
  3. ATRACURIUM [Suspect]
     Route: 042
     Dates: start: 20100420, end: 20100420
  4. ULTIVA [Suspect]
     Route: 042
     Dates: start: 20100420, end: 20100420
  5. SODIUM PHOSPHATE DIBASIC/SODIUM PHOSPHATE MONOBASIC [Suspect]
     Route: 054
     Dates: start: 20100419, end: 20100419
  6. BETADINE [Suspect]
     Route: 003
     Dates: start: 20100419, end: 20100420
  7. BETADINE GYNECOLOGICAL [Suspect]
     Route: 067
     Dates: start: 20100420, end: 20100420
  8. AMOXICILLIN AND CLAVULANATE POTASSIUM [Suspect]
     Route: 042
     Dates: start: 20100420, end: 20100420
  9. NEURONTIN [Suspect]
     Route: 048
     Dates: start: 20100419, end: 20100419
  10. NEURONTIN [Suspect]
     Route: 048
     Dates: start: 20100420, end: 20100420
  11. KETAMINE HCL [Suspect]
     Route: 042
     Dates: start: 20100420, end: 20100420
  12. NAROPIN [Suspect]
     Route: 042
     Dates: start: 20100420, end: 20100420
  13. CALCIUM CHLORIDE HEXAHYDRATE [Suspect]
     Route: 042
     Dates: start: 20100420, end: 20100420
  14. GENTAMICIN [Suspect]
     Route: 042
     Dates: start: 20100420, end: 20100420
  15. RINGER [Concomitant]
     Route: 042
     Dates: start: 20100420
  16. SERUM PHYSIOLOGICAL [Concomitant]
     Route: 042
     Dates: start: 20100420
  17. COTAREG ^NOVARTIS^ [Concomitant]
     Route: 048
  18. LEVOTHYROXINE SODIUM [Concomitant]
     Route: 048
  19. TIMOLOL MALEATE [Concomitant]
     Route: 047

REACTIONS (4)
  - HAEMATURIA [None]
  - LYMPHOPENIA [None]
  - OLIGURIA [None]
  - RENAL FAILURE ACUTE [None]
